FAERS Safety Report 9375755 (Version 1)
Quarter: 2013Q2

REPORT INFORMATION
  Report Type: Report from Study
  Country: US (occurrence: US)
  Receive Date: 20130628
  Receipt Date: 20130628
  Transmission Date: 20140414
  Serious: Yes (Other)
  Sender: FDA-Public Use
  Company Number: US-ASTRAZENECA-2013SE48064

PATIENT
  Sex: 0

DRUGS (18)
  1. SEROQUEL XR [Suspect]
     Route: 048
  2. LISINOPRIL [Suspect]
     Route: 065
  3. TRIAM HCTZ [Suspect]
     Dosage: 37.5 25 UNK
     Route: 065
  4. CLONAZEPAM [Concomitant]
  5. PROZAC [Concomitant]
  6. GABAPENTIN [Concomitant]
  7. RANITIDINE [Concomitant]
  8. CERTIZINE [Concomitant]
  9. CYMBALTA [Concomitant]
  10. LORTAB [Concomitant]
     Dosage: 10-500 UNK
  11. FLUTICASONE PROPIONATE [Concomitant]
  12. VENTOLIN HTA [Concomitant]
  13. ALBUTEROL NEBULIZER [Concomitant]
  14. IPRATROPRION NEBULIZER [Concomitant]
  15. VITAMIN B12 INJECTION [Concomitant]
  16. SIMVASTATIN 20 MG [Concomitant]
  17. OXYGEN (UNABLE TO READ NUMBER FOLLOWING ON APPLICATION) [Concomitant]
  18. TYLENOL [Concomitant]
     Dosage: PRN

REACTIONS (1)
  - Long QT syndrome [Unknown]
